FAERS Safety Report 9315863 (Version 2)
Quarter: 2013Q3

REPORT INFORMATION
  Report Type: Spontaneous
  Country: JP (occurrence: JP)
  Receive Date: 20130530
  Receipt Date: 20130704
  Transmission Date: 20140515
  Serious: Yes (Life-Threatening, Other)
  Sender: FDA-Public Use
  Company Number: JP-MERCK-1305JPN000023

PATIENT
  Age: 78 Year
  Sex: Female

DRUGS (4)
  1. REMERON [Suspect]
     Indication: DEPRESSION
     Dosage: 7.5 MG (0.5 TAB), QD
     Route: 048
     Dates: start: 20130417, end: 20130417
  2. REMERON [Suspect]
     Dosage: 7.5 MG, DIVIDED DOSE FREQUENCY UNKNOWN, TOTAL DAILY DOSE 7.5 MG
     Route: 048
     Dates: start: 201212, end: 201212
  3. EPADEL S [Concomitant]
     Indication: HYPERLIPIDAEMIA
     Dosage: 900 MG, BID
     Route: 048
  4. RECALBON [Concomitant]
     Indication: OSTEOPOROSIS
     Dosage: 50 MG, ONCE EVERY 4 WEEKS
     Route: 048

REACTIONS (1)
  - Rhabdomyolysis [Recovered/Resolved]
